FAERS Safety Report 8324710-9 (Version None)
Quarter: 2012Q2

REPORT INFORMATION
  Report Type: 
  Country: None (occurrence: None)
  Receive Date: 20120501
  Receipt Date: 20120427
  Transmission Date: 20120825
  Serious: Yes (Death, Hospitalization)
  Sender: FDA-Public Use
  Company Number: US-US-EMD SERONO, INC.-7023360

PATIENT
  Sex: Male
  Weight: 118 kg

DRUGS (8)
  1. LITHIUM CARBONATE [Concomitant]
     Indication: BIPOLAR DISORDER
  2. ZOLOFT [Concomitant]
     Indication: ANXIETY
  3. SEROQUEL [Concomitant]
     Indication: PRODUCT USED FOR UNKNOWN INDICATION
  4. BACLOFEN [Concomitant]
     Indication: MUSCLE SPASMS
  5. REBIF [Suspect]
     Indication: MULTIPLE SCLEROSIS
     Route: 058
     Dates: start: 20100826
  6. NEURONTIN [Concomitant]
     Indication: MUSCLE SPASMS
  7. COUMADIN [Concomitant]
     Indication: THROMBOSIS
  8. LASIX [Concomitant]
     Indication: FLUID RETENTION

REACTIONS (4)
  - MULTIPLE SCLEROSIS RELAPSE [None]
  - INJECTION SITE ERYTHEMA [None]
  - PNEUMONIA [None]
  - DECUBITUS ULCER [None]
